FAERS Safety Report 17165434 (Version 1)
Quarter: 2019Q4

REPORT INFORMATION
  Report Type: Spontaneous
  Country: CN (occurrence: CN)
  Receive Date: 20191217
  Receipt Date: 20191217
  Transmission Date: 20200122
  Serious: Yes (Death)
  Sender: FDA-Public Use
  Company Number: CN-B.I. PHARMACEUTICALS,INC./RIDGEFIELD-2019-BI-119715

PATIENT
  Age: 57 Year
  Sex: Male

DRUGS (1)
  1. GILOTRIF [Suspect]
     Active Substance: AFATINIB
     Indication: MIXED HEPATOCELLULAR CHOLANGIOCARCINOMA
     Route: 065

REACTIONS (3)
  - Cachexia [Fatal]
  - Mouth ulceration [Unknown]
  - Biliary tract infection [Fatal]
